FAERS Safety Report 16355882 (Version 11)
Quarter: 2019Q3

REPORT INFORMATION
  Report Type: Spontaneous
  Country: US (occurrence: US)
  Receive Date: 20190526
  Receipt Date: 20190814
  Transmission Date: 20191004
  Serious: Yes (Hospitalization, Other)
  Sender: FDA-Public Use
  Company Number: US-UNITED THERAPEUTICS-UNT-2019-008849

PATIENT
  Age: 14 Year
  Sex: Female
  Weight: 34.92 kg

DRUGS (14)
  1. OPSUMIT [Concomitant]
     Active Substance: MACITENTAN
     Indication: PRODUCT USED FOR UNKNOWN INDICATION
     Dosage: UNK
     Route: 065
  2. LETAIRIS [Suspect]
     Active Substance: AMBRISENTAN
     Indication: PULMONARY ARTERIAL HYPERTENSION
     Dosage: 5 MG, QD
     Route: 048
     Dates: start: 20190403
  3. CHOLECALCIFEROL [Concomitant]
     Active Substance: CHOLECALCIFEROL
     Indication: PRODUCT USED FOR UNKNOWN INDICATION
     Dosage: UNK
     Route: 065
  4. LETAIRIS [Suspect]
     Active Substance: AMBRISENTAN
     Dosage: 10 MG, QD
     Route: 048
  5. REMODULIN [Suspect]
     Active Substance: TREPROSTINIL
     Indication: PULMONARY ARTERIAL HYPERTENSION
     Dosage: 0.086 ?G/KG, CONTINUING
     Route: 058
     Dates: start: 20190403
  6. REMODULIN [Suspect]
     Active Substance: TREPROSTINIL
     Indication: PULMONARY HYPERTENSION
     Dosage: 0.121 ?G/KG, CONTINUING
     Route: 058
  7. REMODULIN [Suspect]
     Active Substance: TREPROSTINIL
     Dosage: 0.117 ?G/KG, CONTINUING
     Route: 058
  8. REMODULIN [Suspect]
     Active Substance: TREPROSTINIL
     Dosage: 0.126 ?G/KG, CONTINUING
     Route: 058
  9. COUMADIN [Concomitant]
     Active Substance: WARFARIN SODIUM
     Indication: PRODUCT USED FOR UNKNOWN INDICATION
     Dosage: UNK
     Route: 065
  10. VITAMINS NOS [Concomitant]
     Active Substance: VITAMINS
     Indication: PRODUCT USED FOR UNKNOWN INDICATION
     Dosage: UNK
     Route: 065
  11. LASIX [Concomitant]
     Active Substance: FUROSEMIDE
     Indication: PRODUCT USED FOR UNKNOWN INDICATION
     Dosage: UNK
     Route: 065
  12. TADALAFIL. [Concomitant]
     Active Substance: TADALAFIL
     Indication: PRODUCT USED FOR UNKNOWN INDICATION
     Dosage: UNK
     Route: 065
  13. WARFARIN [Concomitant]
     Active Substance: WARFARIN
     Indication: PRODUCT USED FOR UNKNOWN INDICATION
     Dosage: UNK
     Route: 065
  14. DIGOXIN. [Concomitant]
     Active Substance: DIGOXIN
     Indication: PRODUCT USED FOR UNKNOWN INDICATION
     Dosage: UNK
     Route: 065

REACTIONS (17)
  - Pericardial effusion [Not Recovered/Not Resolved]
  - Chest pain [Not Recovered/Not Resolved]
  - Dyspnoea [Not Recovered/Not Resolved]
  - Infusion site induration [Not Recovered/Not Resolved]
  - Nausea [Recovered/Resolved]
  - Infusion site warmth [Recovered/Resolved]
  - Sepsis [Recovered/Resolved]
  - Infusion site swelling [Recovered/Resolved]
  - Cardiac failure [Not Recovered/Not Resolved]
  - Influenza [Recovered/Resolved]
  - Pulmonary oedema [Unknown]
  - Infusion site infection [Not Recovered/Not Resolved]
  - Oxygen saturation decreased [Not Recovered/Not Resolved]
  - Infusion site erythema [Recovered/Resolved]
  - Hypoxia [Not Recovered/Not Resolved]
  - Infusion site pain [Not Recovered/Not Resolved]
  - Staphylococcal infection [Unknown]

NARRATIVE: CASE EVENT DATE: 2019
